FAERS Safety Report 13505893 (Version 1)
Quarter: 2017Q2

REPORT INFORMATION
  Report Type: Spontaneous
  Country: US (occurrence: US)
  Receive Date: 20170502
  Receipt Date: 20170502
  Transmission Date: 20170830
  Serious: No
  Sender: FDA-Public Use
  Company Number: US-ROCHE-1402439

PATIENT
  Age: 90 Year
  Sex: Female

DRUGS (1)
  1. AVASTIN [Suspect]
     Active Substance: BEVACIZUMAB
     Indication: NEOVASCULAR AGE-RELATED MACULAR DEGENERATION
     Route: 065

REACTIONS (5)
  - Eye movement disorder [Unknown]
  - Eye disorder [Unknown]
  - Malaise [Unknown]
  - Fatigue [Unknown]
  - Intraocular pressure test [Unknown]
